FAERS Safety Report 8415495-6 (Version None)
Quarter: 2012Q2

REPORT INFORMATION
  Report Type: 
  Country: None (occurrence: None)
  Receive Date: 20120323
  Receipt Date: 20111206
  Transmission Date: 20120825
  Serious: Yes (Hospitalization)
  Sender: FDA-Public Use
  Company Number: 163-21880-11120818

PATIENT
  Age: 78 Year
  Sex: Female
  Weight: 78.0187 kg

DRUGS (6)
  1. RESTORIL [Concomitant]
  2. REVLIMID [Suspect]
     Indication: MULTIPLE MYELOMA
     Dosage: 15 MG, 1 IN 1 D, PO;
     Route: 048
     Dates: start: 20110801
  3. LORTAB [Concomitant]
  4. PHENERGAN HCL [Concomitant]
  5. NORVASC [Concomitant]
  6. CALCIUM [Concomitant]

REACTIONS (1)
  - INFLUENZA [None]
